FAERS Safety Report 6440589-4 (Version None)
Quarter: 2009Q4

REPORT INFORMATION
  Report Type: 
  Country: None (occurrence: None)
  Receive Date: 20091113
  Receipt Date: 20091105
  Transmission Date: 20100525
  Serious: Yes (Death)
  Sender: FDA-Public Use
  Company Number: JP-MERCK-0910USA01800

PATIENT
  Age: 91 Year
  Sex: Female

DRUGS (8)
  1. PEPCID RPD [Suspect]
     Route: 048
  2. BLOPRESS [Concomitant]
     Route: 048
  3. ASPIRIN [Concomitant]
     Route: 048
  4. ATELEC [Concomitant]
     Route: 048
  5. MAGLAX [Concomitant]
     Route: 048
  6. LECICARBON [Concomitant]
     Route: 065
  7. GLYCERIN [Concomitant]
     Route: 065
  8. LAMISIL [Concomitant]
     Route: 065

REACTIONS (2)
  - DEATH [None]
  - RENAL IMPAIRMENT [None]
